FAERS Safety Report 10006254 (Version 1)
Quarter: 2014Q1

REPORT INFORMATION
  Report Type: Spontaneous
  Country: US (occurrence: US)
  Receive Date: 20140313
  Receipt Date: 20140313
  Transmission Date: 20141002
  Serious: No
  Sender: FDA-Public Use
  Company Number: US-ENDO PHARMACEUTICALS INC.-PMCO20130005

PATIENT
  Sex: 0

DRUGS (1)
  1. PROMETHAZINE HYDROCHLORIDE WITH CODEINE SYRUP [Suspect]
     Indication: PRODUCT USED FOR UNKNOWN INDICATION
     Dosage: UNKNOWN
     Route: 048
     Dates: end: 2013

REACTIONS (1)
  - Malaise [Unknown]
